FAERS Safety Report 18501127 (Version 1)
Quarter: 2020Q4

REPORT INFORMATION
  Report Type: Spontaneous
  Country: US (occurrence: US)
  Receive Date: 20201113
  Receipt Date: 20201113
  Transmission Date: 20210114
  Serious: No
  Sender: FDA-Public Use
  Company Number: US-HIKMA PHARMACEUTICALS USA INC.-US-H14001-20-02263

PATIENT
  Sex: Female

DRUGS (1)
  1. LITHIUM CARBONATE. [Suspect]
     Active Substance: LITHIUM CARBONATE
     Indication: MOOD ALTERED
     Route: 048

REACTIONS (7)
  - Haemorrhoids [Unknown]
  - Weight increased [Unknown]
  - Product dose omission issue [Unknown]
  - Rash macular [Unknown]
  - Pruritus [Unknown]
  - Intentional product use issue [Unknown]
  - Skin reaction [Unknown]
